FAERS Safety Report 7247607-4 (Version None)
Quarter: 2011Q1

REPORT INFORMATION
  Report Type: 
  Country: None (occurrence: None)
  Receive Date: 20110127
  Receipt Date: 20110118
  Transmission Date: 20110831
  Serious: Yes (Life-Threatening)
  Sender: FDA-Public Use
  Company Number: DE-CELGENEUS-062-21880-11011746

PATIENT
  Age: 63 Year
  Sex: Male
  Weight: 70 kg

DRUGS (8)
  1. REVLIMID [Suspect]
     Route: 048
     Dates: start: 20100726
  2. THYRONAJOD [Concomitant]
     Route: 065
  3. REVLIMID [Suspect]
     Route: 048
     Dates: start: 20071120, end: 20080701
  4. RAMIPRIL [Concomitant]
     Route: 065
  5. PANTOZOL [Concomitant]
     Route: 065
  6. CARVEDIGAMMA [Concomitant]
     Route: 065
  7. REVLIMID [Suspect]
     Route: 048
     Dates: start: 20090907
  8. REVLIMID [Suspect]
     Route: 048

REACTIONS (2)
  - MYELODYSPLASTIC SYNDROME TRANSFORMATION [None]
  - ACUTE MYELOID LEUKAEMIA [None]
